FAERS Safety Report 10897590 (Version 2)
Quarter: 2020Q1

REPORT INFORMATION
  Report Type: Spontaneous
  Country: CA (occurrence: CA)
  Receive Date: 20150309
  Receipt Date: 20200204
  Transmission Date: 20200409
  Serious: Yes (Death)
  Sender: FDA-Public Use
  Company Number: CA-TEVA-545751ACC

PATIENT
  Age: 37 Year
  Sex: Male
  Weight: 122 kg

DRUGS (15)
  1. METHYLPHENIDATE. [Suspect]
     Active Substance: METHYLPHENIDATE
     Indication: PRODUCT USED FOR UNKNOWN INDICATION
     Dosage: UNKNOWN FORM STRENGTH
     Route: 065
  2. METFORMIN [Suspect]
     Active Substance: METFORMIN HYDROCHLORIDE
     Indication: PRODUCT USED FOR UNKNOWN INDICATION
     Dosage: UNKNOWN FORM STRENGTH
     Route: 065
  3. VALSARTAN W/HYDROCHLOROTHIAZIDE [Suspect]
     Active Substance: HYDROCHLOROTHIAZIDE\VALSARTAN
     Indication: PRODUCT USED FOR UNKNOWN INDICATION
     Dosage: UNKNOWN FORM STRENGTH
     Route: 065
  4. AMLODIPINE [Suspect]
     Active Substance: AMLODIPINE BESYLATE
     Route: 065
  5. ESOMEPRAZOLE. [Suspect]
     Active Substance: ESOMEPRAZOLE MAGNESIUM
     Indication: PRODUCT USED FOR UNKNOWN INDICATION
     Dosage: UNKNOWN FORM STRENGTH
     Route: 048
  6. SYMBICORT [Suspect]
     Active Substance: BUDESONIDE\FORMOTEROL FUMARATE DIHYDRATE
     Indication: PRODUCT USED FOR UNKNOWN INDICATION
     Dosage: UNKNOWN FORM STRENGTH
     Route: 065
  7. BUDESONIDE;FORMOTEROL FUMARATE [Suspect]
     Active Substance: BUDESONIDE\FORMOTEROL FUMARATE
     Indication: PRODUCT USED FOR UNKNOWN INDICATION
     Route: 055
  8. FENTANYL CITRATE. [Suspect]
     Active Substance: FENTANYL CITRATE
     Indication: PRODUCT USED FOR UNKNOWN INDICATION
     Route: 065
  9. METOPROLOL. [Suspect]
     Active Substance: METOPROLOL
     Indication: PRODUCT USED FOR UNKNOWN INDICATION
     Dosage: UNKNOWN FORM STRENGTH
     Route: 065
  10. VALSARTAN. [Suspect]
     Active Substance: VALSARTAN
     Indication: PRODUCT USED FOR UNKNOWN INDICATION
     Route: 065
  11. CLONAZEPAM. [Suspect]
     Active Substance: CLONAZEPAM
     Indication: PRODUCT USED FOR UNKNOWN INDICATION
     Dosage: UNKNOWN FORM STRENGTH
     Route: 065
  12. FENTANYL. [Suspect]
     Active Substance: FENTANYL
     Indication: PRODUCT USED FOR UNKNOWN INDICATION
     Dosage: UNKNOWN FORM STRENGTH
     Route: 062
  13. SERTRALINE [Suspect]
     Active Substance: SERTRALINE HYDROCHLORIDE
     Indication: PRODUCT USED FOR UNKNOWN INDICATION
     Dosage: UNKNOWN FORM STRENGTH
     Route: 065
  14. AMLODIPINE [Suspect]
     Active Substance: AMLODIPINE BESYLATE
     Indication: PRODUCT USED FOR UNKNOWN INDICATION
     Route: 065
  15. METHADONE [Suspect]
     Active Substance: METHADONE HYDROCHLORIDE
     Indication: PRODUCT USED FOR UNKNOWN INDICATION
     Dosage: UNKNOWN FORM STRENGTH
     Route: 065

REACTIONS (3)
  - Overdose [Fatal]
  - Drug level increased [Fatal]
  - Unresponsive to stimuli [Fatal]
